FAERS Safety Report 10083830 (Version 1)
Quarter: 2014Q2

REPORT INFORMATION
  Report Type: Report from Study
  Country: JP (occurrence: JP)
  Receive Date: 20140417
  Receipt Date: 20140417
  Transmission Date: 20141212
  Serious: Yes (Other)
  Sender: FDA-Public Use
  Company Number: JP-SHIRE-JP201401421

PATIENT
  Age: 58 Year
  Sex: Male

DRUGS (17)
  1. 405 (LANTHANUM CARBONATE) [Suspect]
     Indication: HYPERPHOSPHATAEMIA
     Dosage: 750 MG, 1X/DAY:QD
     Route: 048
     Dates: start: 20090617, end: 20110531
  2. 405 (LANTHANUM CARBONATE) [Suspect]
     Dosage: 1500 MG, 1X/DAY:QD
     Route: 048
     Dates: start: 20110601
  3. BAYASPIRIN [Suspect]
     Indication: PRODUCT USED FOR UNKNOWN INDICATION
     Dosage: 100 MG, UNKNOWN
     Route: 048
     Dates: end: 20121205
  4. CARTARETIN [Suspect]
     Indication: HYPERPHOSPHATAEMIA
     Dosage: 3 G, UNKNOWN
     Route: 048
     Dates: end: 20111115
  5. CARTARETIN [Suspect]
     Dosage: 4.5 UNK, UNK
     Route: 048
     Dates: start: 20111116, end: 20130521
  6. CARTARETIN [Suspect]
     Dosage: 1.5 UNK, UNK
     Route: 048
     Dates: start: 20130522
  7. ROCALTROL [Suspect]
     Indication: HYPERPARATHYROIDISM SECONDARY
     Dosage: 1 ?G, 1X/WEEK
     Route: 042
     Dates: start: 20100709, end: 20110721
  8. ROCALTROL [Suspect]
     Dosage: 1 ?G, 1X/WEEK
     Route: 042
     Dates: start: 20111228, end: 20120424
  9. ROCALTROL [Suspect]
     Dosage: 0.5 ?G, 1X/WEEK
     Route: 042
     Dates: start: 20120425
  10. PURSENNID                          /00571902/ [Concomitant]
     Indication: PRODUCT USED FOR UNKNOWN INDICATION
     Dosage: 36 MG, UNKNOWN
     Route: 048
  11. AMLODIN [Concomitant]
     Indication: PRODUCT USED FOR UNKNOWN INDICATION
     Dosage: 10 MG, UNKNOWN
     Route: 048
  12. BASEN                              /01290601/ [Concomitant]
     Indication: PRODUCT USED FOR UNKNOWN INDICATION
     Dosage: 0.6 MG, UNKNOWN
     Route: 048
  13. DIOVAN [Concomitant]
     Indication: PRODUCT USED FOR UNKNOWN INDICATION
     Dosage: 60 MG, UNKNOWN
     Route: 048
  14. CARDENALIN [Concomitant]
     Indication: PRODUCT USED FOR UNKNOWN INDICATION
     Dosage: 4 MG, UNKNOWN
     Route: 048
  15. REGPARA [Concomitant]
     Indication: HYPERPARATHYROIDISM SECONDARY
     Dosage: 25 MG, UNKNOWN
     Route: 048
     Dates: start: 20110914, end: 20121113
  16. REGPARA [Concomitant]
     Dosage: 50 UNK, UNK
     Route: 048
     Dates: start: 20121114
  17. ERYTHROPOIETIN [Concomitant]
     Indication: NEPHROGENIC ANAEMIA
     Dosage: UNK, UNKNOWN
     Route: 065

REACTIONS (1)
  - Gastric mucosal lesion [Recovering/Resolving]
